FAERS Safety Report 19530724 (Version 1)
Quarter: 2021Q3

REPORT INFORMATION
  Report Type: Spontaneous
  Country: CN (occurrence: CN)
  Receive Date: 20210713
  Receipt Date: 20210713
  Transmission Date: 20211014
  Serious: Yes (Other)
  Sender: FDA-Public Use
  Company Number: CN-009507513-2107CHN002178

PATIENT
  Age: 56 Year
  Sex: Male
  Weight: 62.5 kg

DRUGS (10)
  1. KEYTRUDA [Suspect]
     Active Substance: PEMBROLIZUMAB
     Indication: BRONCHIAL CARCINOMA
     Dosage: 200 MG, D1, ONCE
     Route: 041
     Dates: start: 20210602, end: 20210602
  2. SODIUM CHLORIDE. [Concomitant]
     Active Substance: SODIUM CHLORIDE
     Indication: BRONCHIAL CARCINOMA
     Dosage: 100 ML, D1, D8
     Route: 041
     Dates: start: 20210602, end: 20210609
  3. GLUCOSE [Concomitant]
     Active Substance: DEXTROSE
     Indication: BRONCHIAL CARCINOMA
     Dosage: 500 ML, ONCE
     Route: 041
     Dates: start: 20210602, end: 20210602
  4. PACLITAXEL FOR INJECTION (ALBUMIN BOUND) [Suspect]
     Active Substance: PACLITAXEL
     Indication: LUNG NEOPLASM MALIGNANT
  5. KEYTRUDA [Suspect]
     Active Substance: PEMBROLIZUMAB
     Indication: LUNG NEOPLASM MALIGNANT
  6. CARBOPLATIN. [Suspect]
     Active Substance: CARBOPLATIN
     Indication: BRONCHIAL CARCINOMA
     Dosage: 0.7 G, D1, ONCE
     Route: 041
     Dates: start: 20210602, end: 20210602
  7. PACLITAXEL FOR INJECTION (ALBUMIN BOUND) [Suspect]
     Active Substance: PACLITAXEL
     Indication: BRONCHIAL CARCINOMA
     Dosage: 0.255 G, D1, D8
     Route: 041
     Dates: start: 20210602, end: 20210609
  8. CARBOPLATIN. [Suspect]
     Active Substance: CARBOPLATIN
     Indication: LUNG NEOPLASM MALIGNANT
  9. SODIUM CHLORIDE. [Concomitant]
     Active Substance: SODIUM CHLORIDE
     Indication: LUNG NEOPLASM MALIGNANT
     Dosage: 100 ML, ONCE
     Route: 041
     Dates: start: 20210602, end: 20210602
  10. GLUCOSE [Concomitant]
     Active Substance: DEXTROSE
     Indication: LUNG NEOPLASM MALIGNANT

REACTIONS (1)
  - Full blood count decreased [Recovering/Resolving]

NARRATIVE: CASE EVENT DATE: 20210605
